FAERS Safety Report 14593282 (Version 2)
Quarter: 2018Q1

REPORT INFORMATION
  Report Type: Spontaneous
  Country: ZA (occurrence: ZA)
  Receive Date: 20180302
  Receipt Date: 20180312
  Transmission Date: 20180509
  Serious: Yes (Hospitalization, Other)
  Sender: FDA-Public Use
  Company Number: ZA-PFIZER INC-2018084193

PATIENT
  Age: 55 Year
  Sex: Female

DRUGS (3)
  1. OSTEONATE /01026402/ [Suspect]
     Active Substance: RISEDRONATE SODIUM
     Dosage: 70 MG
  2. CELEBREX [Suspect]
     Active Substance: CELECOXIB
     Indication: PAIN
     Dosage: 200 MG
  3. CALCIFEROL [Suspect]
     Active Substance: ERGOCALCIFEROL
     Dosage: 50000 IU

REACTIONS (4)
  - Hypercalcaemia [Not Recovered/Not Resolved]
  - Nephrolithiasis [Not Recovered/Not Resolved]
  - Product use issue [Unknown]
  - Pancreatolithiasis [Not Recovered/Not Resolved]
